FAERS Safety Report 4785914-5 (Version None)
Quarter: 2005Q4

REPORT INFORMATION
  Report Type: 
  Country: None (occurrence: None)
  Receive Date: 20051003
  Receipt Date: 20050902
  Transmission Date: 20060501
  Serious: Yes (Death, Life-Threatening)
  Sender: FDA-Public Use
  Company Number: PHHO2005JP13884

PATIENT
  Age: 66 Year
  Sex: Male
  Weight: 61 kg

DRUGS (8)
  1. DIOVAN [Suspect]
     Indication: HYPERTENSION
     Dosage: 80 MG, QD
     Route: 048
     Dates: start: 20030820
  2. HYPOCA [Concomitant]
     Indication: HYPERTENSION
     Dates: end: 20041020
  3. SELECTOL [Concomitant]
     Indication: HYPERTENSION
     Dates: end: 20040830
  4. FRANDOL [Concomitant]
  5. THEO-DUR [Concomitant]
     Indication: CHRONIC OBSTRUCTIVE PULMONARY DISEASE
  6. MUCOSOLVAN [Concomitant]
     Indication: CHRONIC OBSTRUCTIVE PULMONARY DISEASE
  7. TERSIGAN [Concomitant]
     Indication: CHRONIC OBSTRUCTIVE PULMONARY DISEASE
  8. FLUITRAN [Concomitant]
     Indication: HYPERTENSION
     Dates: start: 20040512, end: 20040830

REACTIONS (1)
  - LUNG NEOPLASM MALIGNANT [None]
